FAERS Safety Report 8007223-3 (Version None)
Quarter: 2011Q4

REPORT INFORMATION
  Report Type: 
  Country: None (occurrence: None)
  Receive Date: 20111227
  Receipt Date: 20111222
  Transmission Date: 20120403
  Serious: Yes (Hospitalization)
  Sender: FDA-Public Use
  Company Number: FR-PFIZER INC-2011311063

PATIENT
  Age: 91 Year
  Sex: Female

DRUGS (9)
  1. LOVENOX [Concomitant]
     Dosage: UNKNOWN
  2. PROPRANOLOL HCL [Suspect]
     Dosage: 80 MG, 3X/DAY
     Route: 048
     Dates: start: 20110701, end: 20110922
  3. STABLON [Concomitant]
     Dosage: 12.5 MG, 2X/DAY
  4. PREVISCAN [Concomitant]
     Indication: ATRIAL FIBRILLATION
     Dosage: 5 MG, 1X/DAY
     Dates: start: 20110201
  5. AMLODIPINE BESYLATE [Suspect]
     Dosage: 10 MG, 1X/DAY
     Route: 048
     Dates: start: 20110702, end: 20110922
  6. POLYETHYLENE GLYCOL [Concomitant]
     Dosage: 10 MG, 2X/DAY
  7. DIGOXIN [Suspect]
     Dosage: 0.125 MG, 1X/DAY
     Route: 048
     Dates: start: 20110702, end: 20110922
  8. LASIX [Concomitant]
     Dosage: 40 MG, UNK
  9. NEO-MERCAZOLE TAB [Concomitant]
     Dosage: 20 MG, 1X/DAY
     Dates: start: 20110701

REACTIONS (4)
  - LOSS OF CONSCIOUSNESS [None]
  - CARDIAC FAILURE [None]
  - BRADYCARDIA [None]
  - MALAISE [None]
